FAERS Safety Report 4947895-0 (Version None)
Quarter: 2006Q1

REPORT INFORMATION
  Report Type: 
  Country: None (occurrence: None)
  Receive Date: 20060314
  Receipt Date: 20060306
  Transmission Date: 20060701
  Serious: Yes (Hospitalization)
  Sender: FDA-Public Use
  Company Number: 9609590

PATIENT
  Age: 51 Year
  Sex: Male

DRUGS (13)
  1. ZITHROMAX [Suspect]
     Indication: SINUSITIS
     Dosage: 250 MG (DAILY), ORAL
     Route: 048
     Dates: start: 19950301, end: 19950301
  2. LOVASTATIN [Suspect]
     Indication: HYPERCHOLESTEROLAEMIA
     Dosage: 40 MG
     Dates: start: 19900101
  3. COLCHICUM JTL LIQ [Concomitant]
  4. CARDIZEM [Concomitant]
  5. CHOLESTYRAMINE RESIN (COLESTYRAMINE) [Concomitant]
  6. DOXAZOSIN (DOXAZOSIN) [Concomitant]
  7. GLYBURIDE [Concomitant]
  8. THYROID TAB [Concomitant]
  9. ALLOPURINOL [Concomitant]
  10. PREDNISONE TAB [Concomitant]
  11. NAPROSYN [Concomitant]
  12. LORATADINE [Concomitant]
  13. BECLOMETHASONE (BECLOMETASONE) [Concomitant]

REACTIONS (11)
  - BLOOD CREATINE INCREASED [None]
  - BLOOD PHOSPHORUS INCREASED [None]
  - BLOOD THYROID STIMULATING HORMONE DECREASED [None]
  - CULTURE POSITIVE [None]
  - LYMPHADENOPATHY [None]
  - OLIGURIA [None]
  - PHARYNGOLARYNGEAL PAIN [None]
  - RHABDOMYOLYSIS [None]
  - SINUSITIS [None]
  - STAPHYLOCOCCAL INFECTION [None]
  - THYROXINE DECREASED [None]
